FAERS Safety Report 5840837-5 (Version None)
Quarter: 2008Q3

REPORT INFORMATION
  Report Type: 
  Country: None (occurrence: None)
  Receive Date: 20080811
  Receipt Date: 20080724
  Transmission Date: 20090109
  Serious: No
  Sender: FDA-Public Use
  Company Number: US-BOEHRINGER INGELHEIM GMBH, GERMANY-2008-BP-11681BP

PATIENT
  Sex: Female

DRUGS (9)
  1. ATROVENT HFA [Suspect]
     Indication: EMPHYSEMA
     Route: 055
     Dates: start: 20070101
  2. PLAVIX [Concomitant]
  3. LIPITOR [Concomitant]
     Indication: BLOOD CHOLESTEROL INCREASED
  4. SEREVENT [Concomitant]
     Indication: EMPHYSEMA
  5. AZMACORT [Concomitant]
     Indication: EMPHYSEMA
  6. ALBUTEROL [Concomitant]
     Indication: EMPHYSEMA
  7. EFFEXOR XR [Concomitant]
     Indication: ANXIETY
  8. EFFEXOR XR [Concomitant]
     Indication: DEPRESSION
  9. PERIACTIN [Concomitant]
     Indication: WEIGHT DECREASED

REACTIONS (2)
  - OROPHARYNGEAL PAIN [None]
  - THROAT IRRITATION [None]
